FAERS Safety Report 25987212 (Version 1)
Quarter: 2025Q4

REPORT INFORMATION
  Report Type: Spontaneous
  Country: AE (occurrence: AE)
  Receive Date: 20251103
  Receipt Date: 20251103
  Transmission Date: 20260119
  Serious: Yes (Life-Threatening, Hospitalization, Other)
  Sender: ALKEM
  Company Number: None

PATIENT
  Age: 28 Month
  Sex: Male
  Weight: 14.6 kg

DRUGS (1)
  1. IBUPROFEN [Suspect]
     Active Substance: IBUPROFEN
     Indication: Pain
     Dosage: UNK (4 DOSES), SYRUP
     Route: 065

REACTIONS (2)
  - Gastric ulcer perforation [Recovered/Resolved]
  - Prescription drug used without a prescription [Unknown]
